FAERS Safety Report 9373411 (Version 1)
Quarter: 2013Q2

REPORT INFORMATION
  Report Type: Spontaneous
  Country: FR (occurrence: FR)
  Receive Date: 20130627
  Receipt Date: 20130627
  Transmission Date: 20140414
  Serious: Yes (Other)
  Sender: FDA-Public Use
  Company Number: FR-TEVA-415728ISR

PATIENT
  Age: 81 Year
  Sex: Male

DRUGS (5)
  1. FUROSEMIDE TEVA 40 MG [Suspect]
     Indication: MICTURITION DISORDER
     Dosage: 40 MILLIGRAM DAILY;
     Route: 048
  2. TAHOR [Concomitant]
  3. CORDARONE [Concomitant]
  4. LANSOPRAZOLE [Concomitant]
  5. PREVISCAN [Concomitant]

REACTIONS (4)
  - Movement disorder [Recovering/Resolving]
  - Somnolence [Recovering/Resolving]
  - Lethargy [Recovering/Resolving]
  - Memory impairment [Recovering/Resolving]
